FAERS Safety Report 12811004 (Version 3)
Quarter: 2016Q4

REPORT INFORMATION
  Report Type: Report from Study
  Country: FR (occurrence: FR)
  Receive Date: 20161005
  Receipt Date: 20161202
  Transmission Date: 20170207
  Serious: Yes (Other)
  Sender: FDA-Public Use
  Company Number: FR-PFIZER INC-2016461866

PATIENT
  Age: 73 Year
  Sex: Female
  Weight: 55 kg

DRUGS (2)
  1. FULVESTRANT [Concomitant]
     Active Substance: FULVESTRANT
     Dosage: UNK
  2. PALBOCICLIB [Suspect]
     Active Substance: PALBOCICLIB
     Indication: BREAST CANCER
     Dosage: 125 MG, DAILY 3 WEEKS ON/1 WEEK OFF
     Route: 048
     Dates: start: 20160808, end: 20161020

REACTIONS (3)
  - Platelet count decreased [Not Recovered/Not Resolved]
  - Renal failure [Recovered/Resolved]
  - Haemoglobin decreased [Not Recovered/Not Resolved]

NARRATIVE: CASE EVENT DATE: 20160822
